FAERS Safety Report 8605401-3 (Version None)
Quarter: 2012Q3

REPORT INFORMATION
  Report Type: 
  Country: None (occurrence: None)
  Receive Date: 20120807
  Receipt Date: 20120723
  Transmission Date: 20120928
  Serious: Yes (Hospitalization)
  Sender: FDA-Public Use
  Company Number: 2012SGN00329

PATIENT
  Age: 28 Year
  Sex: Male
  Weight: 107.9 kg

DRUGS (8)
  1. ONDANSETRON [Concomitant]
  2. ADRIAMYCIN (DOXORUBICIN) [Suspect]
     Indication: HODGKIN'S DISEASE
     Dosage: 375 MG/M2
  3. PERCOCET [Concomitant]
  4. VINBLASTINE SULFATE [Suspect]
     Indication: HODGKIN'S DISEASE
     Dosage: 6 MG/M2
     Dates: start: 20120712, end: 20120712
  5. LORAZEPAM [Concomitant]
  6. COMPAZINE [Concomitant]
  7. DACARBAZINE [Suspect]
     Dosage: 25 MG/M2
     Dates: start: 20120712, end: 20120712
  8. BRENTUXIMAB VEDOTIN (BRENTUXIMAB VEDOTIN) INJECTION [Suspect]
     Indication: HODGKIN'S DISEASE
     Dosage: 1.2 MG/KG
     Dates: start: 20120614, end: 20120712

REACTIONS (1)
  - FEBRILE NEUTROPENIA [None]
